FAERS Safety Report 23076311 (Version 1)
Quarter: 2023Q4

REPORT INFORMATION
  Report Type: Spontaneous
  Country: GB (occurrence: GB)
  Receive Date: 20231017
  Receipt Date: 20231017
  Transmission Date: 20240109
  Serious: Yes (Hospitalization, Disabling)
  Sender: FDA-Public Use
  Company Number: GB-MHRA-MED-202310071944090860-QZBHC

PATIENT
  Age: 43 Year
  Sex: Male
  Weight: 107 kg

DRUGS (1)
  1. DEXAMETHASONE [Suspect]
     Active Substance: DEXAMETHASONE
     Indication: Product used for unknown indication
     Dosage: 16 MILLIGRAM DAILY; 4MG QDS
     Route: 065

REACTIONS (2)
  - Hallucination [Recovering/Resolving]
  - Abnormal behaviour [Recovering/Resolving]
